FAERS Safety Report 17535264 (Version 1)
Quarter: 2020Q1

REPORT INFORMATION
  Report Type: Spontaneous
  Country: US (occurrence: US)
  Receive Date: 20200305
  Receipt Date: 20200305
  Transmission Date: 20200409
  Serious: No
  Sender: FDA-Public Use
  Company Number: None

PATIENT
  Age: 78 Year
  Sex: Female

DRUGS (1)
  1. DULOXETINE HCL QUALITY CARE PRODUCTS [Suspect]
     Active Substance: DULOXETINE HYDROCHLORIDE

REACTIONS (6)
  - Nodule [None]
  - Dizziness [None]
  - Head injury [None]
  - Eye contusion [None]
  - Fall [None]
  - Loss of consciousness [None]

NARRATIVE: CASE EVENT DATE: 20200227
